FAERS Safety Report 5537075-2 (Version None)
Quarter: 2007Q4

REPORT INFORMATION
  Report Type: 
  Country: None (occurrence: None)
  Receive Date: 20071120
  Receipt Date: 20061004
  Transmission Date: 20080405
  Serious: Yes (Other)
  Sender: FDA-Public Use
  Company Number: 31142

PATIENT
  Age: 29 Year
  Sex: Female
  Weight: 67.586 kg

DRUGS (2)
  1. METHOTREXATE [Suspect]
     Indication: GESTATIONAL TROPHOBLASTIC TUMOUR
     Dosage: 50MG/M2 (87MG)/IM
     Route: 030
     Dates: start: 20060925
  2. BIRTH CONTROL PILLS [Concomitant]

REACTIONS (2)
  - ERYTHEMA [None]
  - TINNITUS [None]
